FAERS Safety Report 22251342 (Version 1)
Quarter: 2023Q2

REPORT INFORMATION
  Report Type: Spontaneous
  Country: JP (occurrence: JP)
  Receive Date: 20230425
  Receipt Date: 20230425
  Transmission Date: 20230722
  Serious: Yes (Other)
  Sender: FDA-Public Use
  Company Number: JP-SPECGX-T202300908

PATIENT
  Sex: Female

DRUGS (1)
  1. METHADONE [Suspect]
     Active Substance: METHADONE HYDROCHLORIDE
     Indication: Cancer pain
     Dosage: 50 MILLIGRAM, QD
     Route: 048
     Dates: start: 20221027, end: 20230315

REACTIONS (1)
  - Electrocardiogram ST-T segment abnormal [Recovered/Resolved]
